FAERS Safety Report 24940473 (Version 1)
Quarter: 2025Q1

REPORT INFORMATION
  Report Type: Spontaneous
  Country: US (occurrence: US)
  Receive Date: 20250207
  Receipt Date: 20250207
  Transmission Date: 20250408
  Serious: No
  Sender: ROCHE
  Company Number: US-ROCHE-10000197687

PATIENT
  Sex: Female

DRUGS (42)
  1. XOLAIR [Suspect]
     Active Substance: OMALIZUMAB
     Indication: Atrial fibrillation
     Route: 058
  2. XOLAIR [Suspect]
     Active Substance: OMALIZUMAB
     Indication: Atrial flutter
  3. AMIODARONE [Concomitant]
     Active Substance: AMIODARONE
  4. AMLODIPINE [Concomitant]
     Active Substance: AMLODIPINE BESYLATE
  5. ATROVENT [Concomitant]
     Active Substance: IPRATROPIUM BROMIDE
  6. BUDESONIDE [Concomitant]
     Active Substance: BUDESONIDE
  7. BUSPIRONE [Concomitant]
     Active Substance: BUSPIRONE HYDROCHLORIDE
  8. ELIQUIS [Concomitant]
     Active Substance: APIXABAN
  9. FUROSEMIDE [Concomitant]
     Active Substance: FUROSEMIDE
  10. GLUCAGONE [Concomitant]
  11. HYDROCODONE [Concomitant]
     Active Substance: HYDROCODONE
  12. LUMIGAN [Concomitant]
     Active Substance: BIMATOPROST
  13. NEXIUM [Concomitant]
     Active Substance: ESOMEPRAZOLE MAGNESIUM
  14. PEPCID [Concomitant]
     Active Substance: FAMOTIDINE
  15. SODIUM CHLORIDE [Concomitant]
     Active Substance: SODIUM CHLORIDE
  16. TIZANIDINE HYDROCHLORIDE [Concomitant]
     Active Substance: TIZANIDINE HYDROCHLORIDE
  17. VASCEPA [Concomitant]
     Active Substance: ICOSAPENT ETHYL
  18. ARIPIPRAZOLE [Concomitant]
     Active Substance: ARIPIPRAZOLE
  19. ASPIRIN [Concomitant]
     Active Substance: ASPIRIN
  20. ATORVASTATIN CALCIUM [Concomitant]
     Active Substance: ATORVASTATIN CALCIUM
  21. CALCIUM [Concomitant]
     Active Substance: CALCIUM
  22. DORZOLAMIDE RATIOPHARM [Concomitant]
  23. EPIPEN [Concomitant]
     Active Substance: EPINEPHRINE
  24. ESOMEPRAZOLE [Concomitant]
     Active Substance: ESOMEPRAZOLE
  25. FERROUS GLUCONATE;THIAMINE HYDROCHLORIDE [Concomitant]
  26. FLUTICASONE [Concomitant]
     Active Substance: FLUTICASONE
  27. FOLIC ACID [Concomitant]
     Active Substance: FOLIC ACID
  28. LANTUS [Concomitant]
     Active Substance: INSULIN GLARGINE
  29. METFORMIN HYDROCHLORIDE [Concomitant]
     Active Substance: METFORMIN HYDROCHLORIDE
  30. METOPROLOL [Concomitant]
     Active Substance: METOPROLOL
  31. MONTELUKAST [Concomitant]
     Active Substance: MONTELUKAST
  32. MUCINEX [Concomitant]
     Active Substance: GUAIFENESIN
  33. NALOXONE HCL [Concomitant]
     Active Substance: NALOXONE HYDROCHLORIDE
  34. NOVOLOG [Concomitant]
     Active Substance: INSULIN ASPART
  35. SPIRONOLACTONE [Concomitant]
     Active Substance: SPIRONOLACTONE
  36. VALSARTAN [Concomitant]
     Active Substance: VALSARTAN
  37. VENLAFAXINE [Concomitant]
     Active Substance: VENLAFAXINE HYDROCHLORIDE
  38. VICTOZA [Concomitant]
     Active Substance: LIRAGLUTIDE
  39. CLOBETASOL [Concomitant]
     Active Substance: CLOBETASOL
  40. ALBUTEROL [Concomitant]
     Active Substance: ALBUTEROL
  41. LASIX [Concomitant]
     Active Substance: FUROSEMIDE
  42. TRELEGY ELLIPTA [Concomitant]
     Active Substance: FLUTICASONE FUROATE\UMECLIDINIUM BROMIDE\VILANTEROL TRIFENATATE

REACTIONS (2)
  - Off label use [Unknown]
  - No adverse event [Unknown]
